FAERS Safety Report 22043892 (Version 2)
Quarter: 2023Q1

REPORT INFORMATION
  Report Type: Spontaneous
  Country: ME (occurrence: None)
  Receive Date: 20230228
  Receipt Date: 20230309
  Transmission Date: 20230417
  Serious: Yes (Other)
  Sender: FDA-Public Use
  Company Number: 2023A045309

PATIENT
  Age: 22709 Day
  Sex: Female
  Weight: 60 kg

DRUGS (2)
  1. DAPAGLIFLOZIN [Suspect]
     Active Substance: DAPAGLIFLOZIN
     Indication: Type 2 diabetes mellitus
     Dosage: 10 MG, EVERY DAY
     Route: 048
     Dates: start: 20230104, end: 20230219
  2. VICTOZA [Suspect]
     Active Substance: LIRAGLUTIDE
     Indication: Type 2 diabetes mellitus
     Dosage: 6 MG/ML, DAILY
     Route: 058
     Dates: start: 20230104

REACTIONS (2)
  - Acute febrile neutrophilic dermatosis [Not Recovered/Not Resolved]
  - Blood glucose increased [Unknown]

NARRATIVE: CASE EVENT DATE: 20230215
